FAERS Safety Report 14972617 (Version 3)
Quarter: 2019Q1

REPORT INFORMATION
  Report Type: Spontaneous
  Country: US (occurrence: US)
  Receive Date: 20180605
  Receipt Date: 20190114
  Transmission Date: 20190417
  Serious: Yes (Other)
  Sender: FDA-Public Use
  Company Number: US-PFIZER INC-2018223476

PATIENT
  Age: 72 Year
  Sex: Female

DRUGS (16)
  1. LIDODERM [Concomitant]
     Active Substance: LIDOCAINE
     Dosage: 1 DF, DAILY
  2. XOPENEX HFA [Concomitant]
     Active Substance: LEVALBUTEROL TARTRATE
     Indication: DYSPNOEA
     Dosage: 2 DF, AS NEEDED (EVERY 4 HOURS)
     Route: 048
  3. OMEPRAZOLE DR [Concomitant]
     Active Substance: OMEPRAZOLE
     Dosage: 1 DF, 1X/DAY
     Route: 048
  4. CARDIZEM CD [Concomitant]
     Active Substance: DILTIAZEM HYDROCHLORIDE
     Dosage: 1 DF, 1X/DAY
     Route: 048
  5. CARTIA XT [Concomitant]
     Active Substance: DILTIAZEM HYDROCHLORIDE
     Dosage: 1 DF, 1X/DAY
     Route: 048
  6. TERAZOL 7 [Concomitant]
     Active Substance: TERCONAZOLE
     Dosage: 1 DF, UNK (AT BED TIME FOR 7 DAYS)
     Route: 067
  7. ATIVAN [Concomitant]
     Active Substance: LORAZEPAM
     Dosage: UNK UNK, 3X/DAY (1/2 TABLET )
     Route: 048
  8. VITAMIN D3 [Concomitant]
     Active Substance: CHOLECALCIFEROL
     Dosage: 1 DF, WEEKLY
     Route: 048
  9. PREMARIN [Suspect]
     Active Substance: ESTROGENS, CONJUGATED
     Indication: VULVOVAGINAL DRYNESS
     Dosage: UNK, DAILY (EVERY DAY FOR 2 WEEKS, THEN TWICE WEEKLY)
     Route: 067
     Dates: start: 201612, end: 201803
  10. CYTOTEC [Concomitant]
     Active Substance: MISOPROSTOL
     Dosage: 100 UG, DAILY (8-12 HOURS BEFORE APPOINTMENT)
     Route: 048
  11. HYDRODIURIL [Concomitant]
     Active Substance: HYDROCHLOROTHIAZIDE
     Dosage: 1 DF, DAILY
     Route: 048
  12. BABY ASPIRIN [Concomitant]
     Active Substance: ASPIRIN
     Dosage: UNK
     Route: 048
  13. MEDROL [Concomitant]
     Active Substance: METHYLPREDNISOLONE
     Dosage: 6 DF, DAILY (AS DIRECTED AND DECREASE BY 1 TAB EACH DAY UNTILL FINISHED)
     Route: 048
  14. MAXZIDE-25 [Concomitant]
     Active Substance: HYDROCHLOROTHIAZIDE\TRIAMTERENE
     Dosage: 1 DF, DAILY
     Route: 048
  15. XOPENEX HFA [Concomitant]
     Active Substance: LEVALBUTEROL TARTRATE
     Indication: WHEEZING
  16. FLOVENT HFA [Concomitant]
     Active Substance: FLUTICASONE PROPIONATE
     Dosage: 1 DF, 2X/DAY
     Route: 048

REACTIONS (10)
  - Abdominal pain upper [Unknown]
  - Thrombocytopenia [Unknown]
  - Vaginal haemorrhage [Not Recovered/Not Resolved]
  - Dysuria [Unknown]
  - Cystitis [Unknown]
  - Muscle spasms [Not Recovered/Not Resolved]
  - Oedema peripheral [Unknown]
  - Pain [Not Recovered/Not Resolved]
  - Urinary tract infection [Unknown]
  - Gastrooesophageal reflux disease [Unknown]

NARRATIVE: CASE EVENT DATE: 201712
